FAERS Safety Report 9360395 (Version 1)
Quarter: 2013Q2

REPORT INFORMATION
  Report Type: Spontaneous
  Country: US (occurrence: US)
  Receive Date: 20130621
  Receipt Date: 20130621
  Transmission Date: 20140414
  Serious: No
  Sender: FDA-Public Use
  Company Number: US-US-EMD SERONO, INC.-7023431

PATIENT
  Sex: 0

DRUGS (1)
  1. REBIF [Suspect]
     Indication: MULTIPLE SCLEROSIS
     Route: 058
     Dates: start: 20100614

REACTIONS (5)
  - Migraine [Unknown]
  - Gait disturbance [Unknown]
  - Hemiparesis [Unknown]
  - Injection site reaction [Unknown]
  - Pain [Unknown]
